FAERS Safety Report 20372537 (Version 2)
Quarter: 2022Q1

REPORT INFORMATION
  Report Type: Report from Study
  Country: US (occurrence: US)
  Receive Date: 20220125
  Receipt Date: 20220128
  Transmission Date: 20220423
  Serious: Yes (Hospitalization, Other)
  Sender: FDA-Public Use
  Company Number: US-ABBVIE-22K-163-4242367-00

PATIENT
  Age: 74 Year
  Sex: Male
  Weight: 63.560 kg

DRUGS (8)
  1. DUOPA [Suspect]
     Active Substance: CARBIDOPA\LEVODOPA
     Indication: Parkinson^s disease
     Route: 050
     Dates: start: 20160530, end: 20211122
  2. DUOPA [Suspect]
     Active Substance: CARBIDOPA\LEVODOPA
  3. EXELON [Concomitant]
     Active Substance: RIVASTIGMINE TARTRATE
     Indication: Product used for unknown indication
     Route: 062
  4. NUPLAZID [Concomitant]
     Active Substance: PIMAVANSERIN TARTRATE
     Indication: Product used for unknown indication
     Route: 048
  5. METHIMAZOLE [Concomitant]
     Active Substance: METHIMAZOLE
     Indication: Product used for unknown indication
     Route: 048
  6. PFIZER-BIONTECH COVID-19 VACCINE [Concomitant]
     Active Substance: TOZINAMERAN
     Indication: COVID-19 immunisation
     Dosage: PFIZER, FIRST DOSE
     Route: 030
     Dates: start: 20210401, end: 20210401
  7. PFIZER-BIONTECH COVID-19 VACCINE [Concomitant]
     Active Substance: TOZINAMERAN
     Dosage: SECOND DOSE PFIZER
     Route: 030
     Dates: start: 20210422, end: 20210422
  8. PFIZER-BIONTECH COVID-19 VACCINE [Concomitant]
     Active Substance: TOZINAMERAN
     Dosage: THIRD PFIZER
     Route: 030
     Dates: start: 202201, end: 202201

REACTIONS (4)
  - Atrial fibrillation [Recovered/Resolved]
  - Hospitalisation [Unknown]
  - COVID-19 [Recovering/Resolving]
  - Device dislocation [Unknown]

NARRATIVE: CASE EVENT DATE: 20220114
